FAERS Safety Report 20011018 (Version 3)
Quarter: 2021Q4

REPORT INFORMATION
  Report Type: Report from Study
  Country: CA (occurrence: CA)
  Receive Date: 20211029
  Receipt Date: 20211218
  Transmission Date: 20220303
  Serious: Yes (Death, Hospitalization, Other)
  Sender: FDA-Public Use
  Company Number: CA-ABBVIE-21K-028-4140283-00

PATIENT
  Sex: Male

DRUGS (1)
  1. HUMIRA [Suspect]
     Active Substance: ADALIMUMAB
     Indication: Rheumatoid arthritis
     Route: 058
     Dates: start: 20201116

REACTIONS (37)
  - Multiple organ dysfunction syndrome [Fatal]
  - Sepsis [Fatal]
  - Cardiogenic shock [Fatal]
  - Shock [Unknown]
  - Splenic infarction [Unknown]
  - Myocardial infarction [Unknown]
  - Intestinal ischaemia [Unknown]
  - Depressed level of consciousness [Unknown]
  - Hepatic infarction [Unknown]
  - Skin discolouration [Unknown]
  - Hepatic enzyme increased [Unknown]
  - Blood glucose decreased [Unknown]
  - Blood bilirubin increased [Unknown]
  - Platelet count decreased [Unknown]
  - Abdominal pain [Not Recovered/Not Resolved]
  - Dyspnoea [Not Recovered/Not Resolved]
  - Urine output decreased [Unknown]
  - Blood pressure increased [Unknown]
  - Pleural effusion [Unknown]
  - Fall [Unknown]
  - Bronchial secretion retention [Unknown]
  - Asthenia [Unknown]
  - Immobile [Unknown]
  - Atelectasis [Unknown]
  - Hypoventilation [Unknown]
  - Carbon dioxide increased [Unknown]
  - Discomfort [Unknown]
  - Pain [Unknown]
  - Tachypnoea [Unknown]
  - Hypotension [Unknown]
  - Unevaluable event [Unknown]
  - Blood creatinine increased [Unknown]
  - Blood potassium increased [Unknown]
  - Ischaemia [Unknown]
  - Pneumonia [Unknown]
  - Oxygen saturation decreased [Unknown]
  - Livedo reticularis [Unknown]

NARRATIVE: CASE EVENT DATE: 20210101
